FAERS Safety Report 10868376 (Version 1)
Quarter: 2015Q1

REPORT INFORMATION
  Report Type: Spontaneous
  Country: US (occurrence: US)
  Receive Date: 20150225
  Receipt Date: 20150225
  Transmission Date: 20150721
  Serious: No
  Sender: FDA-Public Use
  Company Number: US-ASTRAZENECA-2015SE15682

PATIENT
  Sex: Male

DRUGS (1)
  1. CRESTOR [Suspect]
     Active Substance: ROSUVASTATIN CALCIUM
     Indication: HYPERLIPIDAEMIA
     Dosage: 20, UNKNOWN
     Route: 048

REACTIONS (3)
  - Arthritis [Unknown]
  - Muscle spasms [Unknown]
  - Chronic obstructive pulmonary disease [Unknown]
